FAERS Safety Report 5341897-0 (Version None)
Quarter: 2007Q2

REPORT INFORMATION
  Report Type: 
  Country: None (occurrence: None)
  Receive Date: 20070601
  Receipt Date: 20070521
  Transmission Date: 20071010
  Serious: Yes (Hospitalization)
  Sender: FDA-Public Use
  Company Number: FR-ELI_LILLY_AND_COMPANY-FR200705005652

PATIENT
  Age: 82 Year
  Sex: Female

DRUGS (4)
  1. FORTEO [Suspect]
     Indication: OSTEOPOROSIS
     Dosage: 20 UG, DAILY (1/D)
     Route: 058
     Dates: start: 20060227, end: 20070503
  2. FORTEO [Suspect]
     Dosage: 20 UG, DAILY (1/D)
     Route: 058
     Dates: start: 20070513
  3. ACTISKENAN [Concomitant]
     Indication: BACK PAIN
     Dosage: 10 MG, 4/D
     Route: 048
     Dates: start: 20060101, end: 20070201
  4. SKENAN [Concomitant]
     Indication: BACK PAIN
     Dosage: 30 MG, 2/D
     Route: 048
     Dates: start: 20070201

REACTIONS (2)
  - BACK PAIN [None]
  - POST PROCEDURAL HAEMATOMA [None]
